FAERS Safety Report 22347795 (Version 1)
Quarter: 2023Q2

REPORT INFORMATION
  Report Type: Spontaneous
  Country: CN (occurrence: CN)
  Receive Date: 20230522
  Receipt Date: 20230522
  Transmission Date: 20230721
  Serious: Yes (Life-Threatening, Hospitalization, Other)
  Sender: FDA-Public Use
  Company Number: CN-BAYER-2023A069226

PATIENT
  Age: 75 Year
  Sex: Male
  Weight: 55 kg

DRUGS (1)
  1. XARELTO [Suspect]
     Active Substance: RIVAROXABAN
     Indication: Venous thrombosis limb
     Dosage: 15 MG, QD
     Route: 048
     Dates: start: 20220622, end: 20230323

REACTIONS (10)
  - Intraventricular haemorrhage [Recovering/Resolving]
  - Hydrocephalus [Unknown]
  - Headache [Unknown]
  - Asthenia [Unknown]
  - Nausea [Unknown]
  - Vomiting [Unknown]
  - Inappropriate schedule of product administration [Unknown]
  - Product prescribing issue [Unknown]
  - Prescribed underdose [Unknown]
  - Underdose [Unknown]

NARRATIVE: CASE EVENT DATE: 20220622
